FAERS Safety Report 13164921 (Version 3)
Quarter: 2017Q3

REPORT INFORMATION
  Report Type: Report from Study
  Country: US (occurrence: US)
  Receive Date: 20170130
  Receipt Date: 20170907
  Transmission Date: 20171127
  Serious: Yes (Hospitalization)
  Sender: FDA-Public Use
  Company Number: US-ACTELION-A-NJ2017-149183

PATIENT
  Age: 71 Year
  Sex: Female
  Weight: 49.89 kg

DRUGS (5)
  1. VENTAVIS [Suspect]
     Active Substance: ILOPROST
     Dosage: 5 MCG, 3-9X/DAILY
     Route: 055
  2. REVATIO [Concomitant]
     Active Substance: SILDENAFIL CITRATE
  3. LETAIRIS [Concomitant]
     Active Substance: AMBRISENTAN
  4. DILTIAZEM. [Concomitant]
     Active Substance: DILTIAZEM
  5. VENTAVIS [Suspect]
     Active Substance: ILOPROST
     Indication: PULMONARY HYPERTENSION
     Dosage: 5 MCG, 6-9X/DAILY
     Route: 055
     Dates: start: 20120131

REACTIONS (7)
  - Cardiac disorder [Unknown]
  - Pain [Unknown]
  - Fluid retention [Unknown]
  - Candida infection [Unknown]
  - Haematoma [Unknown]
  - Cough [Unknown]
  - Dyspnoea [Unknown]
